FAERS Safety Report 6103306-3 (Version None)
Quarter: 2009Q1

REPORT INFORMATION
  Report Type: 
  Country: None (occurrence: None)
  Receive Date: 20090305
  Receipt Date: 20090226
  Transmission Date: 20090719
  Serious: Yes (Other)
  Sender: FDA-Public Use
  Company Number: US-ROCHE-601484

PATIENT
  Sex: Male
  Weight: 77.1 kg

DRUGS (8)
  1. CAPECITABINE [Suspect]
     Dosage: TAKES 6 TABLETS DAILY.
     Route: 048
     Dates: start: 20081125
  2. CAPECITABINE [Suspect]
     Dosage: DOSE REPORTED AS: 1500 MG AM AND 1000 MG PM, 1- 14 OF EACH CYCLE
     Route: 048
     Dates: end: 20090203
  3. TAXOTERE [Concomitant]
  4. GEMZAR [Concomitant]
  5. IMODIUM [Concomitant]
  6. SUCRALFATE [Concomitant]
  7. MEGACE [Concomitant]
  8. 1 CONCOMITANT DRUG [Concomitant]
     Dosage: REPORTED AS ^BIMIX^

REACTIONS (9)
  - ANOREXIA [None]
  - ASTHENIA [None]
  - DIARRHOEA [None]
  - MALIGNANT NEOPLASM PROGRESSION [None]
  - MOUTH HAEMORRHAGE [None]
  - MUCOSAL INFLAMMATION [None]
  - PAIN [None]
  - STOMATITIS [None]
  - STOMATITIS HAEMORRHAGIC [None]
